FAERS Safety Report 8584481-8 (Version None)
Quarter: 2012Q3

REPORT INFORMATION
  Report Type: 
  Country: None (occurrence: None)
  Receive Date: 20120810
  Receipt Date: 20120807
  Transmission Date: 20120928
  Serious: No
  Sender: FDA-Public Use
  Company Number: US-PFIZER INC-2012174796

PATIENT
  Age: 73 Year
  Sex: Female
  Weight: 62.585 kg

DRUGS (5)
  1. SERTRALINE [Concomitant]
     Dosage: 50 MG, UNK
  2. CALCIUM WITH VITAMIN D [Concomitant]
     Dosage: 600 MG, UNK
  3. LEVOTHYROXINE [Concomitant]
     Dosage: 25 MG, UNK
  4. XALKORI [Suspect]
     Indication: LUNG NEOPLASM MALIGNANT
     Dosage: 250 MG, 2X/DAY
     Route: 048
     Dates: start: 20120101
  5. FISH OIL [Concomitant]
     Dosage: UNK

REACTIONS (6)
  - CATARACT [None]
  - VISUAL ACUITY REDUCED [None]
  - HAEMOGLOBIN DECREASED [None]
  - HAEMATOCRIT DECREASED [None]
  - BLOOD GROWTH HORMONE ABNORMAL [None]
  - VOMITING [None]
